FAERS Safety Report 15018013 (Version 1)
Quarter: 2018Q2

REPORT INFORMATION
  Report Type: Spontaneous
  Country: US (occurrence: US)
  Receive Date: 20180615
  Receipt Date: 20180615
  Transmission Date: 20180711
  Serious: Yes (Other)
  Sender: FDA-Public Use
  Company Number: US-PFIZER INC-2018243850

PATIENT
  Age: 77 Year
  Sex: Female

DRUGS (1)
  1. IBRANCE [Suspect]
     Active Substance: PALBOCICLIB
     Indication: BREAST CANCER METASTATIC
     Dosage: 125 MG, UNK

REACTIONS (12)
  - Asthenia [Unknown]
  - Pain [Unknown]
  - Hepatic lesion [Unknown]
  - Nausea [Unknown]
  - Neoplasm progression [Unknown]
  - Pleural effusion [Unknown]
  - Bone pain [Unknown]
  - Fatigue [Unknown]
  - Breast mass [Unknown]
  - Decreased appetite [Unknown]
  - Invasive ductal breast carcinoma [Unknown]
  - Weight decreased [Unknown]

NARRATIVE: CASE EVENT DATE: 20140228
